FAERS Safety Report 6381302-9 (Version None)
Quarter: 2009Q3

REPORT INFORMATION
  Report Type: 
  Country: None (occurrence: None)
  Receive Date: 20090929
  Receipt Date: 20090918
  Transmission Date: 20100115
  Serious: Yes (Other)
  Sender: FDA-Public Use
  Company Number: NL-AMGEN-US356573

PATIENT
  Age: 46 Year
  Sex: Male
  Weight: 85 kg

DRUGS (3)
  1. ENBREL [Suspect]
     Indication: PSORIASIS
     Route: 058
     Dates: start: 20060214, end: 20090801
  2. SIMVASTATIN [Concomitant]
     Indication: HYPERCHOLESTEROLAEMIA
     Dosage: UNK
     Route: 065
     Dates: start: 20071201
  3. DIXARIT [Concomitant]
     Indication: MIGRAINE
     Route: 065

REACTIONS (2)
  - MONOPARESIS [None]
  - TRANSIENT ISCHAEMIC ATTACK [None]
